FAERS Safety Report 10016560 (Version 1)
Quarter: 2014Q1

REPORT INFORMATION
  Report Type: Spontaneous
  Country: US (occurrence: US)
  Receive Date: 20140317
  Receipt Date: 20140317
  Transmission Date: 20141002
  Serious: No
  Sender: FDA-Public Use
  Company Number: US-PFIZER INC-2014073946

PATIENT
  Age: 56 Year
  Sex: Female

DRUGS (11)
  1. DILANTIN-125 [Suspect]
     Dosage: UNK
  2. SIMVASTATIN [Suspect]
     Dosage: UNK
  3. HYDROCHLOROTHIAZIDE [Suspect]
     Dosage: UNK
  4. DARVOCET [Suspect]
     Dosage: UNK
  5. PERCOCET [Suspect]
     Dosage: UNK
  6. LAMICTAL [Suspect]
     Dosage: UNK
  7. SYNTHROID [Suspect]
     Dosage: UNK
  8. ACIPHEX [Suspect]
     Dosage: UNK
  9. KEPPRA [Suspect]
     Dosage: UNK
  10. DIOVAN [Suspect]
     Dosage: UNK
  11. ULTRAM [Suspect]
     Dosage: UNK

REACTIONS (1)
  - Drug hypersensitivity [Unknown]
